FAERS Safety Report 6726484-1 (Version None)
Quarter: 2010Q2

REPORT INFORMATION
  Report Type: 
  Country: None (occurrence: None)
  Receive Date: 20100514
  Receipt Date: 20100512
  Transmission Date: 20101027
  Serious: Yes (Life-Threatening, Hospitalization)
  Sender: FDA-Public Use
  Company Number: GB-CEPHALON-2010002470

PATIENT
  Sex: Male

DRUGS (2)
  1. TRISENOX [Suspect]
     Indication: ACUTE MYELOID LEUKAEMIA
     Dates: start: 20100415
  2. ALL-TRANS RETINOIC ACID [Suspect]
     Indication: ACUTE MYELOID LEUKAEMIA
     Dates: start: 20100415

REACTIONS (1)
  - OBSTRUCTIVE AIRWAYS DISORDER [None]
